FAERS Safety Report 10154616 (Version 1)
Quarter: 2014Q2

REPORT INFORMATION
  Report Type: Spontaneous
  Country: RU (occurrence: RU)
  Receive Date: 20140506
  Receipt Date: 20140506
  Transmission Date: 20141212
  Serious: Yes (Other)
  Sender: FDA-Public Use
  Company Number: RU-ASTRAZENECA-2014SE28932

PATIENT
  Age: 3 Year
  Sex: Female

DRUGS (1)
  1. NEXIUM [Suspect]
     Indication: CYSTIC FIBROSIS
     Route: 048

REACTIONS (1)
  - Off label use [Unknown]
